FAERS Safety Report 16890761 (Version 1)
Quarter: 2019Q4

REPORT INFORMATION
  Report Type: Report from Study
  Country: RO (occurrence: RO)
  Receive Date: 20191007
  Receipt Date: 20191007
  Transmission Date: 20200122
  Serious: Yes (Hospitalization, Other)
  Sender: FDA-Public Use
  Company Number: RO-GILEAD-2019-0418844

PATIENT
  Age: 62 Year
  Sex: Female

DRUGS (12)
  1. LEDIPASVIR/SOFOSBUVIR [Suspect]
     Active Substance: LEDIPASVIR\SOFOSBUVIR
     Indication: HEPATITIS C
     Dosage: 1 DOSAGE FORM, QD
     Route: 048
     Dates: start: 20190710, end: 20191001
  2. FUROSEMID [FUROSEMIDE] [Concomitant]
     Active Substance: FUROSEMIDE
  3. LEDIPASVIR/SOFOSBUVIR [Suspect]
     Active Substance: LEDIPASVIR\SOFOSBUVIR
     Indication: HEPATIC CIRRHOSIS
  4. NORVASC [Concomitant]
     Active Substance: AMLODIPINE BESYLATE
     Indication: CARDIAC DISORDER
  5. TERTENSIF [Concomitant]
     Active Substance: INDAPAMIDE
  6. PRESTARIUM [PERINDOPRIL] [Concomitant]
     Indication: CARDIAC DISORDER
  7. ATACAND [Concomitant]
     Active Substance: CANDESARTAN CILEXETIL
     Indication: CARDIAC DISORDER
  8. INSULIN [Concomitant]
     Active Substance: INSULIN NOS
     Indication: DIABETES MELLITUS
  9. KETONAL [KETOPROFEN] [Concomitant]
     Indication: BONE PAIN
  10. NITROMINT [Concomitant]
     Active Substance: NITROGLYCERIN
  11. KETONAL [KETOPROFEN] [Concomitant]
     Indication: RHEUMATOID ARTHRITIS
  12. INDAPAMID [Concomitant]
     Active Substance: INDAPAMIDE
     Indication: CARDIAC DISORDER

REACTIONS (10)
  - Syncope [Recovering/Resolving]
  - Bone pain [Not Recovered/Not Resolved]
  - Dizziness [Recovering/Resolving]
  - Decreased appetite [Not Recovered/Not Resolved]
  - Blood pressure systolic increased [Recovered/Resolved]
  - Weight decreased [Recovering/Resolving]
  - Restlessness [Recovering/Resolving]
  - Back pain [Recovering/Resolving]
  - Headache [Recovering/Resolving]
  - Feeling hot [Recovering/Resolving]

NARRATIVE: CASE EVENT DATE: 20190713
